FAERS Safety Report 16555248 (Version 1)
Quarter: 2019Q3

REPORT INFORMATION
  Report Type: Spontaneous
  Country: JP (occurrence: JP)
  Receive Date: 20190710
  Receipt Date: 20190710
  Transmission Date: 20191004
  Serious: Yes (Hospitalization)
  Sender: FDA-Public Use
  Company Number: JP-EISAI MEDICAL RESEARCH-EC-2019-058836

PATIENT
  Age: 81 Year
  Sex: Male

DRUGS (3)
  1. DONEPEZIL. [Suspect]
     Active Substance: DONEPEZIL
     Indication: DEMENTIA
     Dosage: DOSE AND FREQUENCY UNKNOWN
     Route: 048
  2. YOKUKANSAN [Suspect]
     Active Substance: HERBALS
     Indication: DEMENTIA
     Dosage: DOSE AND FREQUENCY UNKNOWN
     Route: 065
  3. MEMANTINE. [Suspect]
     Active Substance: MEMANTINE
     Indication: DEMENTIA
     Dosage: DOSE AND FREQUENCY UNKNOWN
     Route: 065

REACTIONS (1)
  - Diarrhoea [Recovered/Resolved]
